FAERS Safety Report 5508952-3 (Version None)
Quarter: 2007Q4

REPORT INFORMATION
  Report Type: 
  Country: None (occurrence: None)
  Receive Date: 20071031
  Receipt Date: 20070811
  Transmission Date: 20080405
  Serious: No
  Sender: FDA-Public Use
  Company Number: 2007PV033282

PATIENT
  Sex: Male
  Weight: 72.5755 kg

DRUGS (1)
  1. SYMLIN [Suspect]
     Indication: DRUG USE FOR UNKNOWN INDICATION
     Dosage: 60 MCG; TID; SC, 15 MCG; TID; SC
     Route: 058

REACTIONS (1)
  - DECREASED APPETITE [None]
